FAERS Safety Report 4842762-5 (Version None)
Quarter: 2005Q4

REPORT INFORMATION
  Report Type: 
  Country: None (occurrence: None)
  Receive Date: 20051201
  Receipt Date: 20051121
  Transmission Date: 20060501
  Serious: Yes (Hospitalization)
  Sender: FDA-Public Use
  Company Number: 2005UW17570

PATIENT
  Age: 69 Year
  Sex: Male
  Weight: 78 kg

DRUGS (18)
  1. METOPROLOL SUCCINATE [Suspect]
     Indication: CARDIAC FAILURE CONGESTIVE
     Route: 048
  2. METOPROLOL SUCCINATE [Suspect]
     Indication: HYPERTENSION
     Route: 048
  3. NESIRITIDE CODE NOT BROKEN [Suspect]
     Indication: CARDIAC FAILURE CONGESTIVE
     Route: 042
     Dates: start: 20051031
  4. FUROSEMIDE [Suspect]
     Indication: CARDIAC FAILURE CONGESTIVE
  5. IBUPROFEN [Suspect]
     Indication: PAIN
  6. LOSARTAN [Suspect]
     Indication: CARDIAC FAILURE CONGESTIVE
  7. LOSARTAN [Suspect]
     Indication: HYPERTENSION
  8. TERAZOSIN [Suspect]
     Indication: BENIGN PROSTATIC HYPERPLASIA
     Route: 048
     Dates: start: 20051104
  9. ASPIRIN [Concomitant]
  10. DIPHENHYDRAMINE HCL [Concomitant]
     Indication: HYPERSOMNIA
  11. FERROUS SULFATE TAB [Concomitant]
     Indication: ANAEMIA
  12. GLIPIZIDE [Concomitant]
     Indication: DIABETES MELLITUS NON-INSULIN-DEPENDENT
  13. METFORMIN [Concomitant]
  14. OMEPRAZOLE [Concomitant]
     Indication: DYSPEPSIA
  15. POTASSIUM CHLORIDE [Concomitant]
  16. SIMVASTATIN [Concomitant]
     Indication: HYPERLIPIDAEMIA
  17. TIMOLOL MALEATE [Concomitant]
     Indication: GLAUCOMA
     Route: 047
  18. TRAVOPROST [Concomitant]
     Indication: GLAUCOMA
     Route: 047

REACTIONS (3)
  - DRUG INTERACTION [None]
  - HYPOTENSION [None]
  - RENAL FAILURE ACUTE [None]
